FAERS Safety Report 9274676 (Version 1)
Quarter: 2013Q2

REPORT INFORMATION
  Report Type: Spontaneous
  Country: KR (occurrence: None)
  Receive Date: 20130429
  Receipt Date: 20130429
  Transmission Date: 20140414
  Serious: Yes (Hospitalization, Other)
  Sender: FDA-Public Use
  Company Number: 2013P1004967

PATIENT
  Age: 28 Year
  Sex: Male

DRUGS (7)
  1. RIFAMPIN [Suspect]
     Indication: TUBERCULOSIS
  2. RIFAMPIN [Suspect]
  3. RIFAMPIN [Suspect]
     Indication: TUBERCULOSIS
  4. RIFAMPIN [Suspect]
     Indication: TUBERCULOSIS
  5. ETHAMBUTOL [Suspect]
     Indication: TUBERCULOSIS
  6. ISONIAZID [Suspect]
     Indication: TUBERCULOSIS
  7. PYRAZINAMIDE [Suspect]
     Indication: TUBERCULOSIS

REACTIONS (1)
  - Drug reaction with eosinophilia and systemic symptoms [None]
